FAERS Safety Report 12912853 (Version 4)
Quarter: 2017Q1

REPORT INFORMATION
  Report Type: Spontaneous
  Country: US (occurrence: US)
  Receive Date: 20161104
  Receipt Date: 20170126
  Transmission Date: 20170428
  Serious: No
  Sender: FDA-Public Use
  Company Number: US-PFIZER INC-2016514394

PATIENT
  Age: 70 Year
  Sex: Female
  Weight: 68 kg

DRUGS (3)
  1. LETROZOLE. [Concomitant]
     Active Substance: LETROZOLE
     Indication: BREAST CANCER METASTATIC
     Dosage: 2.5 MG, 1X/DAY (ONCE IN THE MORNING)
     Route: 048
     Dates: start: 20160916
  2. IBRANCE [Suspect]
     Active Substance: PALBOCICLIB
     Indication: BREAST CANCER METASTATIC
     Dosage: 125MG, CYCLIC (ONCE A DAY FOR 21 DAYS THEN OFF FOR 7 DAYS)
     Route: 048
     Dates: start: 20161007
  3. ZOMETA [Concomitant]
     Active Substance: ZOLEDRONIC ACID
     Indication: BONE DISORDER
     Dosage: INTRAVENOUS INFUSION ONCE A MONTH FOR THE FIRST YEAR
     Route: 042
     Dates: start: 20161007

REACTIONS (3)
  - Nausea [Recovered/Resolved]
  - Weight increased [Unknown]
  - White blood cell count decreased [Unknown]

NARRATIVE: CASE EVENT DATE: 20161007
